FAERS Safety Report 23773903 (Version 1)
Quarter: 2024Q2

REPORT INFORMATION
  Report Type: Spontaneous
  Country: US (occurrence: US)
  Receive Date: 20240423
  Receipt Date: 20240423
  Transmission Date: 20240717
  Serious: No
  Sender: FDA-Public Use
  Company Number: US-PFIZER INC-202400090831

PATIENT
  Age: 79 Year
  Sex: Female

DRUGS (2)
  1. LINCOMYCIN HYDROCHLORIDE [Suspect]
     Active Substance: LINCOMYCIN HYDROCHLORIDE
  2. CLINDAMYCIN [Suspect]
     Active Substance: CLINDAMYCIN

REACTIONS (2)
  - Drug hypersensitivity [Unknown]
  - Rash [Unknown]
